FAERS Safety Report 12310490 (Version 3)
Quarter: 2016Q2

REPORT INFORMATION
  Report Type: Spontaneous
  Country: US (occurrence: US)
  Receive Date: 20160427
  Receipt Date: 20160617
  Transmission Date: 20160815
  Serious: Yes (Hospitalization, Other)
  Sender: FDA-Public Use
  Company Number: US-VERTEX PHARMACEUTICALS-2016-002596

PATIENT
  Age: 33 Year
  Sex: Female

DRUGS (17)
  1. AZITHROMYCIN ANHYDROUS. [Concomitant]
     Active Substance: AZITHROMYCIN ANHYDROUS
  2. JUNEL [Concomitant]
     Active Substance: ETHINYL ESTRADIOL\NORETHINDRONE ACETATE
  3. RANITIDINE. [Concomitant]
     Active Substance: RANITIDINE
  4. KALYDECO [Suspect]
     Active Substance: IVACAFTOR
     Indication: CYSTIC FIBROSIS
     Dosage: 1 DF, TWICE WEEKLY
     Route: 048
     Dates: start: 201204
  5. VITAMIN D3 [Concomitant]
     Active Substance: CHOLECALCIFEROL
  6. ADVAIR HFA [Concomitant]
     Active Substance: FLUTICASONE PROPIONATE\SALMETEROL XINAFOATE
  7. NOVOLOG [Concomitant]
     Active Substance: INSULIN ASPART
  8. ZENPEP [Concomitant]
     Active Substance: PANCRELIPASE AMYLASE\PANCRELIPASE LIPASE\PANCRELIPASE PROTEASE
  9. ALBUTEROL. [Concomitant]
     Active Substance: ALBUTEROL
  10. REMERON [Concomitant]
     Active Substance: MIRTAZAPINE
  11. VITAMAX [Concomitant]
  12. PULMOZYME [Concomitant]
     Active Substance: DORNASE ALFA
  13. TOBRAMYCIN. [Concomitant]
     Active Substance: TOBRAMYCIN
  14. MUCOMYST [Concomitant]
     Active Substance: ACETYLCYSTEINE
  15. MIRALAX [Concomitant]
     Active Substance: POLYETHYLENE GLYCOL 3350
  16. CAYSTON [Concomitant]
     Active Substance: AZTREONAM
  17. NACL [Concomitant]
     Active Substance: SODIUM CHLORIDE

REACTIONS (3)
  - Pneumonia [Recovering/Resolving]
  - Exercise tolerance decreased [Unknown]
  - Weight decreased [Unknown]

NARRATIVE: CASE EVENT DATE: 20160503
